FAERS Safety Report 5658062-X (Version None)
Quarter: 2008Q1

REPORT INFORMATION
  Report Type: 
  Country: None (occurrence: None)
  Receive Date: 20080310
  Receipt Date: 20070213
  Transmission Date: 20080703
  Serious: No
  Sender: FDA-Public Use
  Company Number: US-BAYER-200615041BCC

PATIENT
  Sex: Female
  Weight: 61 kg

DRUGS (3)
  1. ALEVE [Suspect]
     Dosage: UNIT DOSE: 220 MG
     Route: 048
     Dates: start: 20060319
  2. REGLAN [Concomitant]
  3. TYLENOL (CAPLET) [Concomitant]

REACTIONS (3)
  - INSOMNIA [None]
  - PALPITATIONS [None]
  - SOMNOLENCE [None]
